FAERS Safety Report 12361458 (Version 2)
Quarter: 2022Q1

REPORT INFORMATION
  Report Type: Report from Study
  Country: US (occurrence: US)
  Receive Date: 20160512
  Receipt Date: 20220323
  Transmission Date: 20220424
  Serious: Yes (Hospitalization)
  Sender: FDA-Public Use
  Company Number: US-SA-2016SA036589

PATIENT
  Age: 68 Year
  Sex: Male

DRUGS (1)
  1. ALIROCUMAB [Suspect]
     Active Substance: ALIROCUMAB
     Indication: Type V hyperlipidaemia
     Dosage: 150 MG, QOW
     Route: 058
     Dates: start: 20160120

REACTIONS (9)
  - Device occlusion [Unknown]
  - Product dose omission issue [Unknown]
  - Blood triglycerides increased [Unknown]
  - Headache [Not Recovered/Not Resolved]
  - Ocular discomfort [Not Recovered/Not Resolved]
  - Headache [Not Recovered/Not Resolved]
  - Disease progression [Unknown]
  - Cardiac operation [Unknown]
  - Stent placement [Unknown]

NARRATIVE: CASE EVENT DATE: 20160101
